FAERS Safety Report 16561225 (Version 2)
Quarter: 2019Q3

REPORT INFORMATION
  Report Type: Spontaneous
  Country: ES (occurrence: ES)
  Receive Date: 20190711
  Receipt Date: 20190731
  Transmission Date: 20191004
  Serious: Yes (Hospitalization)
  Sender: FDA-Public Use
  Company Number: ES-MYLANLABS-2019M1063530

PATIENT
  Age: 86 Year
  Sex: Female

DRUGS (6)
  1. PARACETAMOL/TRAMADOL [Suspect]
     Active Substance: ACETAMINOPHEN\TRAMADOL
     Indication: SCIATICA
     Dosage: UNK, Q8H (TRAMADOL 37,5/ PARACETAMOL 325 MG EACH 8 H)
     Route: 065
  2. METAMIZOL                          /06276701/ [Suspect]
     Active Substance: METAMIZOLE
     Indication: SCIATICA
     Dosage: 575 MILLIGRAM, Q8H (METAMIZOL 575/8 H)
     Route: 065
  3. PREDNISONE. [Suspect]
     Active Substance: PREDNISONE
     Indication: PAIN
     Dosage: 30 MILLIGRAM, QD (PREDNISONA 30 MG/24 H)
     Route: 065
  4. DEXKETOPROFENO [Suspect]
     Active Substance: DEXKETOPROFEN
     Indication: SCIATICA
     Dosage: UNK, Q8H, DEXKETOPROFENO 25/8 H
     Route: 065
  5. OMEPRAZOL                          /00661201/ [Concomitant]
     Active Substance: OMEPRAZOLE
     Indication: SCIATICA
     Dosage: 20 MILLIGRAM, QD (OMEPRAZOL 20 MG/24 H)
     Route: 065
  6. DIAZEPAM. [Suspect]
     Active Substance: DIAZEPAM
     Indication: SCIATICA
     Dosage: 5 MILLIGRAM, QD (DIAZEPAM 5 MG/24 H)
     Route: 065

REACTIONS (2)
  - Cholestasis [Recovered/Resolved]
  - Transaminases increased [Recovered/Resolved]
